FAERS Safety Report 5999636-6 (Version None)
Quarter: 2008Q4

REPORT INFORMATION
  Report Type: 
  Country: None (occurrence: None)
  Receive Date: 20081215
  Receipt Date: 20081201
  Transmission Date: 20090506
  Serious: Yes (Hospitalization, Other)
  Sender: FDA-Public Use
  Company Number: CA-ROCHE-596270

PATIENT
  Sex: Female
  Weight: 94.3 kg

DRUGS (5)
  1. PEG-INTERFERON ALFA 2A (RO 25-8310) [Suspect]
     Dosage: FORM REPORTED: SYRINGE LAST DOSE PRIOR EVENT: 31 OCT 2008
     Route: 058
     Dates: start: 20080530, end: 20081107
  2. PEG-INTERFERON ALFA 2A (RO 25-8310) [Suspect]
     Route: 058
     Dates: start: 20081111
  3. RIBAVIRIN [Suspect]
     Dosage: FORM REPORTED: PILL LAST DOSE PRIOR EVENT:06 NOV 2008
     Route: 048
     Dates: start: 20080530, end: 20081107
  4. RIBAVIRIN [Suspect]
     Route: 048
     Dates: start: 20081111
  5. PREVACID [Concomitant]
     Dates: start: 20081017

REACTIONS (4)
  - ABDOMINAL PAIN [None]
  - COLITIS ISCHAEMIC [None]
  - COLITIS ULCERATIVE [None]
  - CONSTIPATION [None]
